FAERS Safety Report 12145872 (Version 2)
Quarter: 2016Q1

REPORT INFORMATION
  Report Type: Report from Study
  Country: FR (occurrence: FR)
  Receive Date: 20160304
  Receipt Date: 20160317
  Transmission Date: 20160526
  Serious: Yes (Life-Threatening, Hospitalization)
  Sender: FDA-Public Use
  Company Number: FR-EISAI MEDICAL RESEARCH-EC-2016-014520

PATIENT
  Age: 8 Year
  Sex: Female
  Weight: 25 kg

DRUGS (19)
  1. LENVATINIB [Suspect]
     Active Substance: LENVATINIB
     Indication: EWING^S SARCOMA RECURRENT
     Route: 048
     Dates: start: 20160129, end: 20160215
  2. PREDNISOLONE. [Concomitant]
     Active Substance: PREDNISOLONE
  3. CLONAZEPAM. [Concomitant]
     Active Substance: CLONAZEPAM
  4. HYDROXYZINE DICHLORHYDRATE [Concomitant]
  5. MORPHINE [Concomitant]
     Active Substance: MORPHINE
  6. CAFEINE [Concomitant]
     Active Substance: CAFFEINE
  7. PARACETAMOL [Concomitant]
     Active Substance: ACETAMINOPHEN
  8. MACROGOL [Concomitant]
     Active Substance: POLYETHYLENE GLYCOLS
  9. KETAMINE [Concomitant]
     Active Substance: KETAMINE
  10. CLORAZEPATE DIPOTASSIQUE [Concomitant]
  11. GENTAMYCIN [Concomitant]
     Active Substance: GENTAMICIN
  12. VANCOMYCIN [Concomitant]
     Active Substance: VANCOMYCIN
  13. LENVATINIB [Suspect]
     Active Substance: LENVATINIB
     Route: 048
     Dates: start: 20160217, end: 20160217
  14. DEXCHLORPHENIRAMINE MALEATE. [Concomitant]
     Active Substance: DEXCHLORPHENIRAMINE MALEATE
  15. MATHYLNALTREXONE BROMURE [Concomitant]
  16. LENVATINIB [Suspect]
     Active Substance: LENVATINIB
     Route: 048
     Dates: start: 20160224, end: 20160224
  17. ONDANSETRON [Concomitant]
     Active Substance: ONDANSETRON
  18. PHLOROGLUCINOL DIHYDRATE TRIMETHYLPHLOROGLUCINOL [Concomitant]
  19. AMITRIPTYLINE CHLORHYDRATE [Concomitant]

REACTIONS (3)
  - Spinal cord compression [Recovered/Resolved]
  - Platelet count decreased [Not Recovered/Not Resolved]
  - Post procedural haemorrhage [Recovered/Resolved]

NARRATIVE: CASE EVENT DATE: 20160216
